FAERS Safety Report 18713511 (Version 2)
Quarter: 2021Q3

REPORT INFORMATION
  Report Type: Report from Study
  Country: CA (occurrence: CA)
  Receive Date: 20210107
  Receipt Date: 20210924
  Transmission Date: 20211014
  Serious: Yes (Death)
  Sender: FDA-Public Use
  Company Number: CA-HLS-202106819

PATIENT
  Age: 65 Year
  Sex: Male
  Weight: 93 kg

DRUGS (20)
  1. SCOPALAMINE [Concomitant]
     Active Substance: SCOPOLAMINE
     Indication: PRODUCT USED FOR UNKNOWN INDICATION
     Dosage: EVERY 4 HOUR AS NEEDED
     Route: 058
  2. HYDROMORPHONE [Concomitant]
     Active Substance: HYDROMORPHONE
     Indication: PRODUCT USED FOR UNKNOWN INDICATION
     Dosage: 0.5 ? 1 MG EVERY 1 H SUBCUTANEOUS AS NEEDED.
     Route: 065
  3. SYNTHROID [Concomitant]
     Active Substance: LEVOTHYROXINE SODIUM
     Indication: PRODUCT USED FOR UNKNOWN INDICATION
     Route: 048
  4. CLOZARIL [Suspect]
     Active Substance: CLOZAPINE
     Indication: BEHAVIOUR DISORDER
     Dosage: 25 MG QAM + 25 MG QHS
     Route: 048
     Dates: start: 20150724
  5. DIAZEPAM. [Concomitant]
     Active Substance: DIAZEPAM
     Indication: PRODUCT USED FOR UNKNOWN INDICATION
     Dosage: EVERY 5 MINUTES AS NEEDED (SEIZURE)
     Route: 058
  6. VALPROATE SODIUM. [Concomitant]
     Active Substance: VALPROATE SODIUM
     Indication: PRODUCT USED FOR UNKNOWN INDICATION
     Dosage: 500 MG EVERY MORNING AND 800 MG EVERY AFTERNOON AND 750 MG AT BEDTIME
     Route: 048
  7. SALBUTAMOL [Concomitant]
     Active Substance: ALBUTEROL
     Indication: PRODUCT USED FOR UNKNOWN INDICATION
     Dosage: TWO INHALATION TWICE DAILY AS NEEDED
     Route: 065
  8. CLOZARIL [Suspect]
     Active Substance: CLOZAPINE
     Indication: BEHAVIOUR DISORDER
     Dosage: 25 MG EVERY MORNING + 25 MG AT BEDTIME
     Route: 048
     Dates: start: 20150728, end: 20201231
  9. CLOZARIL [Suspect]
     Active Substance: CLOZAPINE
     Indication: DEMENTIA
     Dosage: 25 MG QAM + 25 MG QHS
     Route: 048
     Dates: start: 20150724
  10. SENNOKOT [Concomitant]
     Indication: PRODUCT USED FOR UNKNOWN INDICATION
     Dosage: THREE TIMES DAILY
     Route: 048
  11. GLYCERINE SUPPOSITORY [Concomitant]
     Indication: PRODUCT USED FOR UNKNOWN INDICATION
     Dosage: ON TUESDAY, THURSDAY, AND SATURDAYS
     Route: 065
  12. IPRATROPIUM BROMIDE. [Concomitant]
     Active Substance: IPRATROPIUM BROMIDE
     Indication: PRODUCT USED FOR UNKNOWN INDICATION
     Dosage: INHALED FOUR TIMES DAILY
     Route: 065
  13. ACETAMINOPHEN. [Concomitant]
     Active Substance: ACETAMINOPHEN
     Indication: PRODUCT USED FOR UNKNOWN INDICATION
     Dosage: ORAL /RECTAL EVERY 4 H AS NEEDED
     Route: 065
  14. PEG 3350 [Concomitant]
     Active Substance: POLYETHYLENE GLYCOL 3350
     Indication: PRODUCT USED FOR UNKNOWN INDICATION
     Dosage: THREE TIMES DAILY
     Route: 048
  15. VENLAFAXINE XR [Concomitant]
     Active Substance: VENLAFAXINE HYDROCHLORIDE
     Indication: PRODUCT USED FOR UNKNOWN INDICATION
     Route: 048
  16. CHOLRHEXIDINE GLUCONATE [Concomitant]
     Indication: PRODUCT USED FOR UNKNOWN INDICATION
     Dosage: 0.12% ,5 ML APPLIED TO MOUTH (DO NOT SWALLOW) EVERY MORNING +5 ML APPLIED TO MOUTH (DO NOT SWALLOW)
     Route: 065
  17. OMEPRAZOLE. [Concomitant]
     Active Substance: OMEPRAZOLE
     Indication: PRODUCT USED FOR UNKNOWN INDICATION
     Route: 048
  18. FLEET ENEMA [Concomitant]
     Active Substance: SODIUM PHOSPHATE, DIBASIC\SODIUM PHOSPHATE, MONOBASIC
     Indication: PRODUCT USED FOR UNKNOWN INDICATION
     Route: 054
  19. CLOZARIL [Suspect]
     Active Substance: CLOZAPINE
     Indication: DEMENTIA
     Dosage: 25 MG EVERY MORNING + 25 MG AT BEDTIME
     Route: 048
     Dates: start: 20150728, end: 20201231
  20. NIZORAL [Concomitant]
     Active Substance: KETOCONAZOLE
     Indication: PRODUCT USED FOR UNKNOWN INDICATION
     Dosage: TOPICALLY WEEKLY ON MONDAYS
     Route: 065

REACTIONS (7)
  - Decreased appetite [Fatal]
  - Fatigue [Fatal]
  - Seizure [Fatal]
  - Death [Fatal]
  - Pneumonia aspiration [Fatal]
  - Off label use [Fatal]
  - Pyrexia [Fatal]

NARRATIVE: CASE EVENT DATE: 202012
